FAERS Safety Report 25464012 (Version 1)
Quarter: 2025Q2

REPORT INFORMATION
  Report Type: Spontaneous
  Country: SK (occurrence: SK)
  Receive Date: 20250621
  Receipt Date: 20250621
  Transmission Date: 20250716
  Serious: Yes (Death)
  Sender: ROCHE
  Company Number: SK-ROCHE-10000318052

PATIENT
  Sex: Female

DRUGS (1)
  1. ERIVEDGE [Suspect]
     Active Substance: VISMODEGIB
     Indication: Product used for unknown indication
     Route: 065

REACTIONS (1)
  - Death [Fatal]
